APPROVED DRUG PRODUCT: CIMETIDINE HYDROCHLORIDE
Active Ingredient: CIMETIDINE HYDROCHLORIDE
Strength: EQ 300MG BASE/5ML
Dosage Form/Route: SOLUTION;ORAL
Application: A074176 | Product #001
Applicant: G AND W LABORATORIES INC
Approved: Jun 1, 1994 | RLD: No | RS: No | Type: DISCN